FAERS Safety Report 23478698 (Version 1)
Quarter: 2024Q1

REPORT INFORMATION
  Report Type: Spontaneous
  Country: BR (occurrence: BR)
  Receive Date: 20240205
  Receipt Date: 20240205
  Transmission Date: 20240410
  Serious: No
  Sender: FDA-Public Use
  Company Number: BR-IPSEN Group, Research and Development-2023-21560

PATIENT
  Age: 78 Year
  Sex: Male

DRUGS (2)
  1. CABOMETYX [Suspect]
     Active Substance: CABOZANTINIB S-MALATE
     Indication: Metastatic renal cell carcinoma
     Dosage: 40 MG
     Route: 065
  2. NIVOLUMAB [Suspect]
     Active Substance: NIVOLUMAB
     Indication: Metastatic renal cell carcinoma
     Route: 065

REACTIONS (5)
  - Skin toxicity [Unknown]
  - Mucosal inflammation [Unknown]
  - Diarrhoea [Unknown]
  - Asthenia [Unknown]
  - Weight decreased [Unknown]
